FAERS Safety Report 20215290 (Version 2)
Quarter: 2022Q1

REPORT INFORMATION
  Report Type: Report from Study
  Country: US (occurrence: US)
  Receive Date: 20211222
  Receipt Date: 20220128
  Transmission Date: 20220423
  Serious: No
  Sender: FDA-Public Use
  Company Number: US-NOVARTISTESTPH-NVSC2021US292902

PATIENT
  Sex: Female

DRUGS (1)
  1. PIQRAY [Suspect]
     Active Substance: ALPELISIB
     Indication: Product used for unknown indication
     Dosage: UNK
     Route: 048

REACTIONS (9)
  - Oral disorder [Unknown]
  - Dysphagia [Unknown]
  - Tongue discomfort [Unknown]
  - Diarrhoea [Unknown]
  - Ageusia [Unknown]
  - Vomiting [Unknown]
  - Myalgia [Unknown]
  - Stomatitis [Unknown]
  - Feeding disorder [Unknown]
